FAERS Safety Report 9807389 (Version 6)
Quarter: 2014Q1

REPORT INFORMATION
  Report Type: Spontaneous
  Country: US (occurrence: FR)
  Receive Date: 20140110
  Receipt Date: 20140324
  Transmission Date: 20141002
  Serious: Yes (Hospitalization)
  Sender: FDA-Public Use
  Company Number: US-RANBAXY-2013US-76918

PATIENT
  Age: 42 Year
  Sex: Male

DRUGS (7)
  1. PARACETAMOL [Suspect]
     Indication: PRODUCT USED FOR UNKNOWN INDICATION
     Dosage: 3 G, DAILY
     Route: 048
     Dates: start: 20131108, end: 20131114
  2. EUPANTOL [Suspect]
     Indication: PRODUCT USED FOR UNKNOWN INDICATION
     Dosage: 20 MG, DAILY
     Route: 048
     Dates: start: 20131109, end: 20131114
  3. XARELTO [Suspect]
     Indication: THROMBOSIS PROPHYLAXIS
     Dosage: 10 MG, DAILY
     Route: 048
     Dates: start: 20131108, end: 20131113
  4. MIOREL [Suspect]
     Indication: MUSCLE CONTRACTURE
     Dosage: UNK
     Route: 048
     Dates: end: 20131113
  5. SIKENAN [Suspect]
     Indication: PAIN
     Dosage: 10 MG, BID
     Route: 048
     Dates: start: 20131108, end: 20131113
  6. TOPLAGIC [Suspect]
     Indication: PRODUCT USED FOR UNKNOWN INDICATION
     Dosage: 50 MG, TID
     Route: 048
     Dates: start: 20131108, end: 20131112
  7. BIPROFENID [Suspect]
     Indication: PRODUCT USED FOR UNKNOWN INDICATION
     Dosage: 200 MG, DAILY
     Route: 048
     Dates: start: 20131109, end: 20131111

REACTIONS (1)
  - Transaminases increased [Recovered/Resolved]
